FAERS Safety Report 4812811-9 (Version None)
Quarter: 2005Q4

REPORT INFORMATION
  Report Type: 
  Country: None (occurrence: None)
  Receive Date: 20051028
  Receipt Date: 20041122
  Transmission Date: 20060501
  Serious: No
  Sender: FDA-Public Use
  Company Number: US-GLAXOSMITHKLINE-A0534840A

PATIENT
  Age: 83 Year
  Sex: Female

DRUGS (3)
  1. ADVAIR DISKUS 100/50 [Suspect]
     Indication: ASTHMA
     Route: 055
  2. PILOCARPINE [Concomitant]
  3. NEXIUM [Concomitant]

REACTIONS (2)
  - DRY MOUTH [None]
  - INCREASED UPPER AIRWAY SECRETION [None]
